FAERS Safety Report 8849513 (Version 1)
Quarter: 2012Q4

REPORT INFORMATION
  Report Type: Spontaneous
  Country: US (occurrence: None)
  Receive Date: 20121018
  Receipt Date: 20121018
  Transmission Date: 20130627
  Serious: No
  Sender: FDA-Public Use
  Company Number: None

PATIENT
  Age: 27 Year
  Sex: Female
  Weight: 58.97 kg

DRUGS (2)
  1. BUTRANS [Suspect]
     Indication: CHRONIC PAIN
     Dosage: 5mcg Hour Transdermal
     Route: 062
     Dates: start: 20121009, end: 20121018
  2. BUTRANS [Suspect]
     Indication: FIBROMYALGIA
     Dosage: 5mcg Hour Transdermal
     Route: 062
     Dates: start: 20121009, end: 20121018

REACTIONS (25)
  - Headache [None]
  - Somnolence [None]
  - Dry mouth [None]
  - Constipation [None]
  - Dizziness [None]
  - Nausea [None]
  - Pruritus [None]
  - Decreased appetite [None]
  - Confusional state [None]
  - Mood swings [None]
  - Chest pain [None]
  - Painful respiration [None]
  - Heart rate decreased [None]
  - Blood pressure decreased [None]
  - Dry eye [None]
  - Eye pain [None]
  - Vision blurred [None]
  - Dysarthria [None]
  - Slow speech [None]
  - Tremor [None]
  - Muscle spasms [None]
  - Neck pain [None]
  - Pain in jaw [None]
  - Migraine [None]
  - Feeling abnormal [None]
